FAERS Safety Report 8273126-2 (Version None)
Quarter: 2012Q2

REPORT INFORMATION
  Report Type: 
  Country: None (occurrence: None)
  Receive Date: 20120411
  Receipt Date: 20120403
  Transmission Date: 20120825
  Serious: Yes (Other)
  Sender: FDA-Public Use
  Company Number: GB-JNJFOC-20120403312

PATIENT

DRUGS (32)
  1. CHLORAMBUCIL [Suspect]
     Route: 048
  2. PROCARBAZINE HYDROCHLORIDE [Suspect]
     Route: 048
  3. DOXORUBICIN HCL [Suspect]
     Route: 042
  4. DOXORUBICIN HCL [Suspect]
     Route: 042
  5. BLEOMYCIN SULFATE [Suspect]
     Route: 042
  6. BLEOMYCIN SULFATE [Suspect]
     Route: 042
  7. VINCRISTINE [Suspect]
     Route: 042
  8. CHLORAMBUCIL [Suspect]
     Route: 048
  9. BLEOMYCIN SULFATE [Suspect]
     Route: 042
  10. DACARBAZINE [Suspect]
     Route: 042
  11. CHLORAMBUCIL [Suspect]
     Route: 048
  12. VINBLASTINE SULFATE [Suspect]
     Route: 042
  13. PROCARBAZINE HYDROCHLORIDE [Suspect]
     Route: 048
  14. VINCRISTINE [Suspect]
     Indication: HODGKIN'S DISEASE
     Route: 042
  15. VINCRISTINE [Suspect]
     Route: 042
  16. PREDNISOLONE [Suspect]
     Route: 048
  17. BLEOMYCIN SULFATE [Suspect]
     Indication: HODGKIN'S DISEASE
     Route: 042
  18. DACARBAZINE [Suspect]
     Route: 042
  19. CHLORAMBUCIL [Suspect]
     Indication: HODGKIN'S DISEASE
     Route: 048
  20. PROCARBAZINE HYDROCHLORIDE [Suspect]
     Indication: HODGKIN'S DISEASE
     Route: 048
  21. PREDNISOLONE [Suspect]
     Indication: HODGKIN'S DISEASE
     Route: 048
  22. VINCRISTINE [Suspect]
     Route: 042
  23. DACARBAZINE [Suspect]
     Indication: HODGKIN'S DISEASE
     Route: 042
  24. DACARBAZINE [Suspect]
     Route: 042
  25. VINBLASTINE SULFATE [Suspect]
     Indication: HODGKIN'S DISEASE
     Route: 042
  26. VINBLASTINE SULFATE [Suspect]
     Route: 042
  27. PROCARBAZINE HYDROCHLORIDE [Suspect]
     Route: 048
  28. PREDNISOLONE [Suspect]
     Route: 048
  29. DOXORUBICIN HCL [Suspect]
     Indication: HODGKIN'S DISEASE
     Route: 042
  30. VINBLASTINE SULFATE [Suspect]
     Route: 042
  31. PREDNISOLONE [Suspect]
     Route: 048
  32. DOXORUBICIN HCL [Suspect]
     Route: 042

REACTIONS (1)
  - BASAL CELL CARCINOMA [None]
